FAERS Safety Report 14283902 (Version 1)
Quarter: 2017Q4

REPORT INFORMATION
  Report Type: Spontaneous
  Country: US (occurrence: US)
  Receive Date: 20171213
  Receipt Date: 20171213
  Transmission Date: 20180321
  Serious: Yes (Disabling, Other)
  Sender: FDA-Public Use
  Company Number: None

PATIENT
  Age: 69 Year
  Sex: Male
  Weight: 74.7 kg

DRUGS (4)
  1. LEVOXYL [Concomitant]
     Active Substance: LEVOTHYROXINE SODIUM
  2. HUMALOG [Concomitant]
     Active Substance: INSULIN LISPRO
  3. MUCINEX [Concomitant]
     Active Substance: GUAIFENESIN
  4. SIMVISTATIN [Suspect]
     Active Substance: SIMVASTATIN
     Indication: BLOOD CHOLESTEROL INCREASED
     Dosage: ?          QUANTITY:1 CAPSULE(S);?
     Route: 048
     Dates: start: 20071201, end: 20171122

REACTIONS (8)
  - Gait inability [None]
  - Thrombosis [None]
  - Pallor [None]
  - Feeling abnormal [None]
  - Apparent death [None]
  - Hypersomnia [None]
  - Confusional state [None]
  - Fall [None]

NARRATIVE: CASE EVENT DATE: 20171101
